FAERS Safety Report 4731712-8 (Version None)
Quarter: 2005Q3

REPORT INFORMATION
  Report Type: 
  Country: None (occurrence: None)
  Receive Date: 20050719
  Receipt Date: 20050117
  Transmission Date: 20060218
  Serious: Yes (Hospitalization)
  Sender: FDA-Public Use
  Company Number: 2005BI001139

PATIENT
  Age: 63 Year
  Sex: Male
  Weight: 96.1626 kg

DRUGS (5)
  1. AVONEX [Suspect]
     Indication: MULTIPLE SCLEROSIS
     Dosage: 30 UG; QW; IM
     Route: 030
     Dates: start: 20021201, end: 20040101
  2. AVONEX [Suspect]
     Indication: MULTIPLE SCLEROSIS
     Dosage: 30 UG; QW; IM
     Route: 030
     Dates: start: 20040101, end: 20041201
  3. FOSAMAX [Concomitant]
  4. OXYBUTYNIN [Suspect]
  5. GABAPENTIN [Concomitant]

REACTIONS (2)
  - DEPRESSION [None]
  - HEART RATE IRREGULAR [None]
